FAERS Safety Report 6575454-5 (Version None)
Quarter: 2010Q1

REPORT INFORMATION
  Report Type: 
  Country: None (occurrence: None)
  Receive Date: 20100208
  Receipt Date: 20100208
  Transmission Date: 20100710
  Serious: No
  Sender: FDA-Public Use
  Company Number: None

PATIENT
  Sex: Female

DRUGS (1)
  1. XANAX [Suspect]
     Indication: PANIC DISORDER
     Dosage: 1 MG BID
     Dates: start: 20091208

REACTIONS (5)
  - ABDOMINAL PAIN [None]
  - DIZZINESS [None]
  - PALPITATIONS [None]
  - PRODUCT SUBSTITUTION ISSUE [None]
  - VOMITING [None]
